FAERS Safety Report 9332535 (Version 1)
Quarter: 2013Q2

REPORT INFORMATION
  Report Type: Spontaneous
  Country: US (occurrence: US)
  Receive Date: 20130606
  Receipt Date: 20130606
  Transmission Date: 20140414
  Serious: No
  Sender: FDA-Public Use
  Company Number: US-009507513-1305USA014987

PATIENT
  Age: 25 Year
  Sex: Female
  Weight: 82.99 kg

DRUGS (1)
  1. IMPLANON [Suspect]
     Indication: CONTRACEPTION
     Dosage: 1 ROD
     Route: 059
     Dates: start: 20120917

REACTIONS (3)
  - Metrorrhagia [Unknown]
  - Device difficult to use [Unknown]
  - Medical device complication [Unknown]
